FAERS Safety Report 7817301-7 (Version None)
Quarter: 2011Q4

REPORT INFORMATION
  Report Type: 
  Country: None (occurrence: None)
  Receive Date: 20111013
  Receipt Date: 20110927
  Transmission Date: 20120403
  Serious: Yes (Other)
  Sender: FDA-Public Use
  Company Number: 2011MA014518

PATIENT
  Age: 81 Year
  Sex: Female

DRUGS (2)
  1. LEVETIRACETAM [Suspect]
     Indication: COMPLEX PARTIAL SEIZURES
     Dosage: 750 MG;BID
  2. VALPROIC ACID [Suspect]
     Indication: COMPLEX PARTIAL SEIZURES

REACTIONS (4)
  - PRODUCT SUBSTITUTION ISSUE [None]
  - CONVULSION [None]
  - CONDITION AGGRAVATED [None]
  - ENCEPHALOPATHY [None]
